FAERS Safety Report 5483575-3 (Version None)
Quarter: 2007Q4

REPORT INFORMATION
  Report Type: 
  Country: None (occurrence: None)
  Receive Date: 20071009
  Receipt Date: 20071001
  Transmission Date: 20080405
  Serious: Yes (Death)
  Sender: FDA-Public Use
  Company Number: MEDI-0005732

PATIENT
  Age: 7 Month
  Sex: Female
  Weight: 5.4432 kg

DRUGS (12)
  1. SYNAGIS [Suspect]
     Dosage: INTRAMUSCULAR
     Route: 030
     Dates: start: 20061204, end: 20070329
  2. SYNAGIS [Suspect]
     Dosage: INTRAMUSCULAR
     Route: 030
     Dates: start: 20061204
  3. SYNAGIS [Suspect]
     Dosage: INTRAMUSCULAR
     Route: 030
     Dates: start: 20070103
  4. SYNAGIS [Suspect]
     Dosage: INTRAMUSCULAR
     Route: 030
     Dates: start: 20070131
  5. SYNAGIS [Suspect]
     Dosage: INTRAMUSCULAR
     Route: 030
     Dates: start: 20070301
  6. SYNAGIS [Suspect]
  7. SYNAGIS [Suspect]
  8. SYNAGIS [Suspect]
  9. SYNAGIS [Suspect]
  10. PHENOBARBITAL TAB [Concomitant]
  11. ALBUTEROL [Concomitant]
  12. ATROVENT [Concomitant]

REACTIONS (6)
  - APNOEA [None]
  - ASPIRATION [None]
  - BRONCHIAL SECRETION RETENTION [None]
  - PULSE ABSENT [None]
  - RESPIRATORY ARREST [None]
  - SUDDEN DEATH [None]
